FAERS Safety Report 6728089-5 (Version None)
Quarter: 2010Q2

REPORT INFORMATION
  Report Type: 
  Country: None (occurrence: None)
  Receive Date: 20100517
  Receipt Date: 20100507
  Transmission Date: 20101027
  Serious: Yes (Death)
  Sender: FDA-Public Use
  Company Number: GXKR2010GB05195

PATIENT
  Age: 84 Year
  Sex: Female
  Weight: 50 kg

DRUGS (11)
  1. RIFAMPICIN [Suspect]
     Indication: TUBERCULOSIS
     Dosage: 600 MG, QD
     Route: 048
     Dates: start: 20090921, end: 20091030
  2. ETHAMBUTOL [Suspect]
     Indication: TUBERCULOSIS
     Dosage: 800 MG, QD
     Route: 048
     Dates: start: 20090921, end: 20091030
  3. ISONIAZID [Suspect]
     Indication: TUBERCULOSIS
     Dosage: 300 MG, QD
     Route: 048
     Dates: start: 20090921, end: 20091030
  4. PYRAZINAMIDE [Suspect]
     Indication: TUBERCULOSIS
     Dosage: 2 G, QD
     Route: 048
     Dates: start: 20091021, end: 20091030
  5. CHLORPHENIRAMINE MALEATE [Concomitant]
  6. CLOPIDOGREL BISULFATE [Concomitant]
  7. FUROSEMIDE [Concomitant]
  8. LACTULOSE [Concomitant]
  9. METOCLOPRAMIDE [Concomitant]
  10. PARACETAMOL [Concomitant]
  11. PYRIDOXINE HCL [Concomitant]

REACTIONS (1)
  - HEPATITIS [None]
